FAERS Safety Report 12617886 (Version 1)
Quarter: 2016Q3

REPORT INFORMATION
  Report Type: Spontaneous
  Country: CN (occurrence: CN)
  Receive Date: 20160803
  Receipt Date: 20160803
  Transmission Date: 20161109
  Serious: Yes (Life-Threatening, Hospitalization)
  Sender: FDA-Public Use
  Company Number: CN-ROCHE-1807269

PATIENT
  Age: 2 Month
  Sex: Female
  Weight: 5 kg

DRUGS (1)
  1. CEFTRIAXONE SODIUM. [Suspect]
     Active Substance: CEFTRIAXONE SODIUM
     Indication: UPPER RESPIRATORY TRACT INFECTION
     Dosage: INJECTION PUMP
     Route: 042
     Dates: start: 20160329, end: 20160330

REACTIONS (2)
  - Cough [Recovered/Resolved]
  - Ectropion [Recovered/Resolved]

NARRATIVE: CASE EVENT DATE: 20160330
